FAERS Safety Report 10042391 (Version 2)
Quarter: 2014Q2

REPORT INFORMATION
  Report Type: Spontaneous
  Country: FR (occurrence: FR)
  Receive Date: 20140327
  Receipt Date: 20140411
  Transmission Date: 20141212
  Serious: Yes (Other)
  Sender: FDA-Public Use
  Company Number: FR-ACTAVIS-2014-05660

PATIENT
  Age: 16 Year
  Sex: Male

DRUGS (2)
  1. RISPERIDONE (UNKNOWN) [Suspect]
     Indication: SCHIZOPHRENIA, CATATONIC TYPE
     Dosage: 1 MG, DAILY
     Route: 048
  2. RISPERIDONE (UNKNOWN) [Suspect]
     Dosage: 1.5 MG, DAILY
     Route: 048

REACTIONS (2)
  - Catatonia [Recovered/Resolved]
  - Condition aggravated [Recovered/Resolved]
